FAERS Safety Report 17986374 (Version 1)
Quarter: 2020Q3

REPORT INFORMATION
  Report Type: Report from Study
  Country: TR (occurrence: TR)
  Receive Date: 20200706
  Receipt Date: 20200706
  Transmission Date: 20201103
  Serious: Yes (Other)
  Sender: FDA-Public Use
  Company Number: TR-ALEXION-A202009348

PATIENT
  Sex: Male
  Weight: 74 kg

DRUGS (1)
  1. SOLIRIS [Suspect]
     Active Substance: ECULIZUMAB
     Indication: PAROXYSMAL NOCTURNAL HAEMOGLOBINURIA
     Dosage: 900 MG, Q2W
     Route: 042

REACTIONS (6)
  - Infusion related reaction [Unknown]
  - Syncope [Unknown]
  - Pain [Unknown]
  - Headache [Unknown]
  - Back pain [Unknown]
  - Angina pectoris [Unknown]
